FAERS Safety Report 7387152-9 (Version None)
Quarter: 2011Q1

REPORT INFORMATION
  Report Type: 
  Country: None (occurrence: None)
  Receive Date: 20110331
  Receipt Date: 20110325
  Transmission Date: 20110831
  Serious: Yes (Death)
  Sender: FDA-Public Use
  Company Number: A0920074A

PATIENT
  Age: 71 Year
  Sex: Female

DRUGS (14)
  1. BUMEX [Concomitant]
  2. XANAX [Concomitant]
  3. PRILOSEC [Concomitant]
  4. COREG [Concomitant]
  5. DIGOXIN [Concomitant]
  6. PLAQUENIL [Concomitant]
  7. LASIX [Concomitant]
  8. POTASSIUM [Concomitant]
  9. METHOTREXATE [Concomitant]
  10. LEVOTHYROXINE SODIUM [Concomitant]
  11. TYKERB [Suspect]
     Indication: BREAST CANCER
     Dosage: 5TAB PER DAY
     Route: 048
  12. ASPIRIN [Concomitant]
  13. ZOLOFT [Concomitant]
  14. COZAAR [Concomitant]

REACTIONS (1)
  - BREAST CANCER METASTATIC [None]
